FAERS Safety Report 13931336 (Version 2)
Quarter: 2017Q3

REPORT INFORMATION
  Report Type: Spontaneous
  Country: JP (occurrence: JP)
  Receive Date: 20170903
  Receipt Date: 20170912
  Transmission Date: 20171127
  Serious: Yes (Life-Threatening, Other)
  Sender: FDA-Public Use
  Company Number: JP-009507513-1708JPN003215J

PATIENT
  Age: 70 Year
  Sex: Male

DRUGS (1)
  1. KEYTRUDA [Suspect]
     Active Substance: PEMBROLIZUMAB
     Indication: LUNG NEOPLASM MALIGNANT
     Dosage: 200 MG, Q3W
     Route: 041
     Dates: start: 20170808

REACTIONS (1)
  - Renal impairment [Recovered/Resolved]

NARRATIVE: CASE EVENT DATE: 20170828
